FAERS Safety Report 12389632 (Version 1)
Quarter: 2016Q2

REPORT INFORMATION
  Report Type: Spontaneous
  Country: US (occurrence: US)
  Receive Date: 20160520
  Receipt Date: 20160520
  Transmission Date: 20160815
  Serious: Yes (Other)
  Sender: FDA-Public Use
  Company Number: US-PFIZER INC-3279425

PATIENT
  Age: 60 Year
  Sex: Female

DRUGS (1)
  1. BIVALIRUDIN. [Suspect]
     Active Substance: BIVALIRUDIN
     Indication: CATHETERISATION CARDIAC
     Dosage: UNK UNK, 3X/DAY
     Route: 042
     Dates: start: 20160427

REACTIONS (3)
  - Therapeutic response decreased [Unknown]
  - Product quality issue [Recovered/Resolved]
  - Drug effect decreased [Recovered/Resolved]

NARRATIVE: CASE EVENT DATE: 20160427
